FAERS Safety Report 25954696 (Version 1)
Quarter: 2025Q4

REPORT INFORMATION
  Report Type: Spontaneous
  Country: US (occurrence: US)
  Receive Date: 20251024
  Receipt Date: 20251024
  Transmission Date: 20260118
  Serious: Yes (Hospitalization)
  Sender: ACCORD
  Company Number: US-Accord-509540

PATIENT
  Age: 42 Year
  Sex: Female

DRUGS (8)
  1. CLOZAPINE [Suspect]
     Active Substance: CLOZAPINE
     Indication: Product used for unknown indication
     Dosage: CLOZAPINE (50 MG AM, 125 MG HS)
  2. CLONAZEPAM [Concomitant]
     Active Substance: CLONAZEPAM
  3. DIVALPROEX SODIUM [Concomitant]
     Active Substance: DIVALPROEX SODIUM
  4. LEVOTHYROXINE [Concomitant]
     Active Substance: LEVOTHYROXINE
  5. FUROSEMIDE [Concomitant]
     Active Substance: FUROSEMIDE
  6. NADOLOL [Concomitant]
     Active Substance: NADOLOL
  7. WARFARIN [Concomitant]
     Active Substance: WARFARIN
     Dosage: (DOSING PER INR CLINIC)
  8. ATORVASTATIN [Concomitant]
     Active Substance: ATORVASTATIN
     Dosage: NIGHTLY

REACTIONS (3)
  - Toxicity to various agents [Unknown]
  - Mental status changes [Recovering/Resolving]
  - Respiratory distress [Recovering/Resolving]
